FAERS Safety Report 6962498-4 (Version None)
Quarter: 2010Q3

REPORT INFORMATION
  Report Type: 
  Country: None (occurrence: None)
  Receive Date: 20100831
  Receipt Date: 20100817
  Transmission Date: 20110219
  Serious: Yes (Hospitalization)
  Sender: FDA-Public Use
  Company Number: 017274

PATIENT
  Sex: Male
  Weight: 88.4514 kg

DRUGS (9)
  1. CERTOLIZUMAB PEGOL [Suspect]
     Indication: CROHN'S DISEASE
     Dosage: 400 MG 1X/MONTH SUBCUTANEOUS
     Route: 058
     Dates: start: 20090616
  2. REMICADE [Suspect]
     Indication: CROHN'S DISEASE
     Dosage: 5 MG KG QD INTRAVENOUS (NOT OTHERWISE SPECIFIED, (10 MG/KG QD)
     Route: 042
     Dates: start: 20030828, end: 20050210
  3. REMICADE [Suspect]
     Indication: CROHN'S DISEASE
     Dosage: 5 MG KG QD INTRAVENOUS (NOT OTHERWISE SPECIFIED, (10 MG/KG QD)
     Route: 042
     Dates: start: 20050331, end: 20071217
  4. BUDESONIDE [Suspect]
     Indication: CROHN'S DISEASE
     Dosage: WEANED OFF
     Dates: start: 20090224, end: 20091001
  5. MESALAMINE [Concomitant]
  6. CIPRO XR [Concomitant]
  7. FLAGYL [Concomitant]
  8. PREDNISONE [Concomitant]
  9. AZATHIOPRINE [Concomitant]

REACTIONS (1)
  - INTESTINAL FISTULA [None]
